FAERS Safety Report 21244002 (Version 3)
Quarter: 2023Q2

REPORT INFORMATION
  Report Type: Report from Study
  Country: TH (occurrence: TH)
  Receive Date: 20220823
  Receipt Date: 20230623
  Transmission Date: 20230722
  Serious: Yes (Other)
  Sender: FDA-Public Use
  Company Number: TH-NOVARTISPH-NVSC2022TH187521

PATIENT
  Sex: Female

DRUGS (7)
  1. KISQALI [Suspect]
     Active Substance: RIBOCICLIB
     Indication: Breast cancer metastatic
     Dosage: 200 MG (3 TABLETS) DAILY 1 ST CYCLE
     Route: 048
     Dates: start: 20220717, end: 20220807
  2. KISQALI [Suspect]
     Active Substance: RIBOCICLIB
     Dosage: 200 MG (3 TABLETS) DAILY 2ND CYCLE
     Route: 048
     Dates: start: 20220813
  3. KISQALI [Suspect]
     Active Substance: RIBOCICLIB
     Dosage: UNK, 3 TABLETS QD
     Route: 048
  4. KISQALI [Suspect]
     Active Substance: RIBOCICLIB
     Dosage: UNK 2 TABLETS QD
     Route: 048
  5. ANASTROZOLE [Suspect]
     Active Substance: ANASTROZOLE
     Indication: Product used for unknown indication
     Dosage: 1 DOSAGE FORM DAILY
     Route: 065
  6. ANASTROZOLE [Suspect]
     Active Substance: ANASTROZOLE
     Dosage: 1 MG ((BLUE BLISTER) AMOUNT 30)
     Route: 065
  7. FERROUS SULFATE [Concomitant]
     Active Substance: FERROUS SULFATE
     Indication: Product used for unknown indication
     Dosage: 1 DOSAGE FORM, TID
     Route: 065

REACTIONS (9)
  - Carcinoembryonic antigen increased [Unknown]
  - Balance disorder [Unknown]
  - Anxiety [Unknown]
  - Rash [Unknown]
  - Eating disorder [Unknown]
  - Decreased appetite [Unknown]
  - Haematocrit decreased [Unknown]
  - White blood cell count decreased [Unknown]
  - Platelet count decreased [Unknown]
